FAERS Safety Report 17145589 (Version 1)
Quarter: 2019Q4

REPORT INFORMATION
  Report Type: Spontaneous
  Country: US (occurrence: US)
  Receive Date: 20191212
  Receipt Date: 20191212
  Transmission Date: 20200122
  Serious: Yes (Other)
  Sender: FDA-Public Use
  Company Number: US-MYLANLABS-2019M1101177

PATIENT
  Weight: 103 kg

DRUGS (3)
  1. HEPARIN SODIUM INJECTION USP [Suspect]
     Active Substance: HEPARIN SODIUM
     Indication: CORONARY ARTERY THROMBOSIS
     Dosage: 10000 INTERNATIONAL UNIT
     Route: 040
     Dates: start: 20191017
  2. HEPARIN SODIUM INJECTION USP [Suspect]
     Active Substance: HEPARIN SODIUM
     Dosage: 5000 INTERNATIONAL UNIT
     Route: 040
     Dates: start: 20191017
  3. HEPARIN SODIUM INJECTION USP [Suspect]
     Active Substance: HEPARIN SODIUM
     Dosage: 5000 INTERNATIONAL UNIT
     Route: 040
     Dates: start: 20191017

REACTIONS (1)
  - Drug ineffective [Unknown]

NARRATIVE: CASE EVENT DATE: 20191017
